FAERS Safety Report 6340689-3 (Version None)
Quarter: 2009Q3

REPORT INFORMATION
  Report Type: 
  Country: None (occurrence: None)
  Receive Date: 20090902
  Receipt Date: 20090902
  Transmission Date: 20100115
  Serious: Yes (Other)
  Sender: FDA-Public Use
  Company Number: None

PATIENT
  Age: 67 Year
  Sex: Female
  Weight: 90.7194 kg

DRUGS (1)
  1. SOLARAZE [Suspect]
     Indication: PRECANCEROUS CELLS PRESENT
     Dosage: SMALL AMOUNT TWICE DAILY TOP
     Route: 061
     Dates: start: 20090612, end: 20090825

REACTIONS (6)
  - DISCOMFORT [None]
  - ERYTHEMA [None]
  - PRURITUS [None]
  - SCAB [None]
  - SKIN EXFOLIATION [None]
  - SKIN REACTION [None]
